FAERS Safety Report 24026602 (Version 1)
Quarter: 2024Q2

REPORT INFORMATION
  Report Type: Report from Study
  Country: RO (occurrence: RO)
  Receive Date: 20240628
  Receipt Date: 20240628
  Transmission Date: 20240716
  Serious: No
  Sender: FDA-Public Use
  Company Number: RO-ROCHE-3572350

PATIENT
  Age: 62 Year
  Sex: Female
  Weight: 70.0 kg

DRUGS (1)
  1. PHESGO [Suspect]
     Active Substance: HYALURONIDASE-ZZXF\PERTUZUMAB\TRASTUZUMAB
     Indication: Product used for unknown indication
     Dosage: 600 MG/600 MG, 1 VIAL 10 ML
     Route: 065
     Dates: start: 2021

REACTIONS (2)
  - Memory impairment [Unknown]
  - Treatment noncompliance [Unknown]
